FAERS Safety Report 5331559-8 (Version None)
Quarter: 2007Q2

REPORT INFORMATION
  Report Type: 
  Country: None (occurrence: None)
  Receive Date: 20070522
  Receipt Date: 20070507
  Transmission Date: 20071010
  Serious: Yes (Other)
  Sender: FDA-Public Use
  Company Number: CO-SHR-CO-2007-001779

PATIENT
  Age: 45 Year
  Sex: Female
  Weight: 63 kg

DRUGS (2)
  1. BETASERON [Suspect]
     Indication: MULTIPLE SCLEROSIS
     Dosage: 8 MIU, UNK
     Route: 058
     Dates: start: 20040301
  2. FLUXOTRIMETROL [Concomitant]
     Dates: start: 20000101

REACTIONS (3)
  - CARCINOID TUMOUR OF THE GASTROINTESTINAL TRACT [None]
  - GASTRITIS [None]
  - HIATUS HERNIA [None]
